FAERS Safety Report 8252180-8 (Version None)
Quarter: 2012Q2

REPORT INFORMATION
  Report Type: 
  Country: None (occurrence: None)
  Receive Date: 20120402
  Receipt Date: 20110415
  Transmission Date: 20120825
  Serious: No
  Sender: FDA-Public Use
  Company Number: US-ABBOTT-11P-163-0804447-00

PATIENT
  Sex: Male
  Weight: 79.545 kg

DRUGS (4)
  1. TESTOSTERONE [Suspect]
     Indication: ASTHENIA
     Dosage: DAILY DOSE:  UNKNOWN, AS USED: 5 GRAM, PUMP
     Route: 062
     Dates: start: 20101001
  2. TESTOSTERONE [Suspect]
     Dosage: DAILY DOSE:UNKNOWN,REDUCED BY ONE PUMP DAILY OVER 3 TO 4 DAYS,THEN REMAINED ON A CONSISTENT DOSE
     Route: 062
  3. TESTOSTERONE [Suspect]
     Dosage: DAILY DOSE:  UNKNOWN, AS USED: 10 GRAM, VIA PUMP
     Route: 062
  4. AMLODIPINE BESILATE [Concomitant]
     Indication: BLOOD PRESSURE
     Dosage: DAILY DOSE:  UNKNOWN
     Route: 065

REACTIONS (5)
  - JOINT SWELLING [None]
  - DIZZINESS [None]
  - FLATULENCE [None]
  - ABDOMINAL PAIN UPPER [None]
  - DIARRHOEA [None]
